FAERS Safety Report 9222098 (Version 1)
Quarter: 2013Q1

REPORT INFORMATION
  Report Type: Spontaneous
  Country: US (occurrence: None)
  Receive Date: 20120910
  Receipt Date: 20120910
  Transmission Date: 20140127
  Serious: No
  Sender: FDA-Public Use
  Company Number: 1206USA01620

PATIENT
  Age: 76 Year
  Sex: Female

DRUGS (2)
  1. ZIOPTAN (TAFLUPROST) EYE DROPS, SOLUTION, 0.0015% [Suspect]
     Indication: EYE DISCHARGE
     Route: 047
     Dates: start: 20120508, end: 20120607
  2. ZIOPTAN (TAFLUPROST) EYE DROPS, SOLUTION, 0.0015% [Suspect]
     Indication: INTRAOCULAR PRESSURE INCREASED
     Route: 047
     Dates: start: 20120508, end: 20120607

REACTIONS (1)
  - Drug ineffective [None]
